FAERS Safety Report 10304872 (Version 1)
Quarter: 2014Q3

REPORT INFORMATION
  Report Type: Spontaneous
  Country: AU (occurrence: AU)
  Receive Date: 20140715
  Receipt Date: 20140715
  Transmission Date: 20150326
  Serious: Yes (Death, Hospitalization)
  Sender: FDA-Public Use
  Company Number: AU-ACTELION-A-CH2014-101741

PATIENT
  Age: 65 Year
  Sex: Female
  Weight: 51 kg

DRUGS (4)
  1. OXYGEN. [Concomitant]
     Active Substance: OXYGEN
     Dosage: UNK
     Dates: start: 20131001
  2. SILDENAFIL [Concomitant]
     Active Substance: SILDENAFIL
     Dosage: UNK
     Dates: start: 20140216
  3. WARFARIN [Concomitant]
     Active Substance: WARFARIN
     Dosage: UNK
     Dates: start: 20131001
  4. OPSUMIT [Suspect]
     Active Substance: MACITENTAN
     Indication: PULMONARY ARTERIAL HYPERTENSION
     Dosage: 10 MG, QD
     Route: 048
     Dates: start: 20140626, end: 20140705

REACTIONS (11)
  - Cough [Not Recovered/Not Resolved]
  - Respiratory failure [Fatal]
  - Pneumonia [Not Recovered/Not Resolved]
  - Oliguria [Fatal]
  - Sepsis [Fatal]
  - Dyspnoea [Not Recovered/Not Resolved]
  - White blood cell count increased [Fatal]
  - Pyrexia [Not Recovered/Not Resolved]
  - Respiratory acidosis [Fatal]
  - Renal failure acute [Fatal]
  - Metabolic acidosis [Fatal]

NARRATIVE: CASE EVENT DATE: 20140705
